FAERS Safety Report 25870179 (Version 1)
Quarter: 2025Q4

REPORT INFORMATION
  Report Type: Spontaneous
  Country: US (occurrence: US)
  Receive Date: 20251001
  Receipt Date: 20251001
  Transmission Date: 20260118
  Serious: Yes (Other)
  Sender: NOVO NORDISK
  Company Number: US-NOVOPROD-1529484

PATIENT
  Age: 59 Year
  Sex: Male
  Weight: 155.1 kg

DRUGS (1)
  1. SAXENDA [Suspect]
     Active Substance: LIRAGLUTIDE
     Indication: Weight control
     Dosage: UNK

REACTIONS (3)
  - Metabolic surgery [Unknown]
  - Weight increased [Unknown]
  - Drug ineffective [Unknown]
